FAERS Safety Report 9540381 (Version 4)
Quarter: 2014Q2

REPORT INFORMATION
  Report Type: Report from Study
  Country: JP (occurrence: JP)
  Receive Date: 20130920
  Receipt Date: 20140523
  Transmission Date: 20141212
  Serious: Yes (Hospitalization, Other)
  Sender: FDA-Public Use
  Company Number: JP-CUBIST PHARMACEUTICAL, INC.-2013CBST000821

PATIENT
  Sex: 0

DRUGS (8)
  1. CUBICIN [Suspect]
     Indication: STAPHYLOCOCCAL SKIN INFECTION
     Dosage: 4.2 MG/KG, ONCE A DAY
     Route: 041
     Dates: start: 20130629, end: 20130705
  2. CUBICIN [Suspect]
     Indication: SOFT TISSUE INFECTION
  3. LEVOFLOXACIN HEMIHYDRATE [Suspect]
     Indication: STAPHYLOCOCCAL SKIN INFECTION
     Dosage: 500 MG, ONCE A DAY
     Route: 051
     Dates: start: 20130614, end: 20130701
  4. LEVOFLOXACIN HEMIHYDRATE [Suspect]
     Indication: SOFT TISSUE INFECTION
  5. DOPS [Suspect]
     Indication: PRODUCT USED FOR UNKNOWN INDICATION
     Dosage: 100 MG ONCE A DAY
     Route: 048
     Dates: start: 20110419
  6. TEICOPLANIN [Concomitant]
     Indication: STAPHYLOCOCCAL SKIN INFECTION
     Dosage: 350 MG, QD
     Route: 041
     Dates: start: 20130618, end: 20130628
  7. SINGULAIR [Concomitant]
     Indication: PRODUCT USED FOR UNKNOWN INDICATION
     Dosage: 10 MG, ONCE A DAY
     Route: 048
     Dates: start: 20130525, end: 20130703
  8. PARIET [Concomitant]
     Indication: PRODUCT USED FOR UNKNOWN INDICATION
     Dosage: 10 MG, ONCE A DAY
     Route: 048
     Dates: start: 20110926, end: 20130702

REACTIONS (3)
  - Hepatic function abnormal [Recovering/Resolving]
  - Pyrexia [Recovered/Resolved]
  - Overdose [Unknown]
